FAERS Safety Report 19711162 (Version 2)
Quarter: 2021Q4

REPORT INFORMATION
  Report Type: Spontaneous
  Country: US (occurrence: US)
  Receive Date: 20210817
  Receipt Date: 20211027
  Transmission Date: 20220303
  Serious: Yes (Hospitalization, Other)
  Sender: FDA-Public Use
  Company Number: US-PFIZER INC-202101009166

PATIENT
  Age: 11 Year
  Sex: Male
  Weight: 23.7 kg

DRUGS (5)
  1. BESPONSA [Suspect]
     Active Substance: INOTUZUMAB OZOGAMICIN
     Indication: Acute lymphocytic leukaemia
     Dosage: 0.7 MG, DAY 1
     Route: 042
     Dates: start: 20210709, end: 20210709
  2. BESPONSA [Suspect]
     Active Substance: INOTUZUMAB OZOGAMICIN
     Dosage: 0.45 MG, DAY 8
     Route: 042
     Dates: start: 20210716, end: 20210716
  3. ALLOPURINOL [Concomitant]
     Active Substance: ALLOPURINOL
     Indication: Tumour lysis syndrome
     Dosage: 200 MG, 2X/DAY
     Dates: start: 20210711, end: 20210715
  4. CEFEPIME [Concomitant]
     Active Substance: CEFEPIME HYDROCHLORIDE
     Indication: Pyrexia
     Dosage: 1240 MG
     Dates: start: 20210623, end: 20210721
  5. DICYCLOMINE [Concomitant]
     Active Substance: DICYCLOMINE HYDROCHLORIDE
     Indication: Abdominal pain
     Dosage: 10 MG, 3X/DAY
     Dates: start: 20210716, end: 20210803

REACTIONS (14)
  - Cystitis haemorrhagic [Recovered/Resolved]
  - Thrombotic microangiopathy [Recovering/Resolving]
  - Polyneuropathy [Unknown]
  - Haematuria [Recovering/Resolving]
  - Red blood cell schistocytes [Unknown]
  - Hypertension [Recovering/Resolving]
  - Proteinuria [Unknown]
  - Urinary tract infection [Unknown]
  - Diarrhoea [Unknown]
  - Complement factor increased [Unknown]
  - Pyrexia [Recovered/Resolved]
  - Nausea [Unknown]
  - Vomiting [Unknown]
  - Off label use [Unknown]

NARRATIVE: CASE EVENT DATE: 20210709
